FAERS Safety Report 5863000-0 (Version None)
Quarter: 2008Q3

REPORT INFORMATION
  Report Type: 
  Country: None (occurrence: None)
  Receive Date: 20080828
  Receipt Date: 20080822
  Transmission Date: 20090109
  Serious: Yes (Other)
  Sender: FDA-Public Use
  Company Number: IE-AVENTIS-200818009GDDC

PATIENT
  Age: 34 Year
  Sex: Female

DRUGS (4)
  1. TELFAST                            /01314201/ [Suspect]
  2. XOLAIR [Suspect]
     Indication: ASTHMA
     Route: 058
     Dates: start: 20070312, end: 20080617
  3. SERETIDE DISCUS [Suspect]
  4. VENTOLIN [Suspect]

REACTIONS (1)
  - ABORTION SPONTANEOUS [None]
